FAERS Safety Report 23072646 (Version 1)
Quarter: 2023Q4

REPORT INFORMATION
  Report Type: Spontaneous
  Country: US (occurrence: US)
  Receive Date: 20231017
  Receipt Date: 20231017
  Transmission Date: 20240109
  Serious: Yes (Hospitalization)
  Sender: FDA-Public Use
  Company Number: US-drreddys-LIT/USA/23/0179782

PATIENT
  Sex: Female

DRUGS (4)
  1. CAPECITABINE [Suspect]
     Active Substance: CAPECITABINE
     Indication: Prolactin-producing pituitary tumour
  2. CABERGOLINE [Suspect]
     Active Substance: CABERGOLINE
     Indication: Prolactin-producing pituitary tumour
  3. CABERGOLINE [Suspect]
     Active Substance: CABERGOLINE
     Dosage: RE-INITIATED
  4. TEMOZOLOMIDE [Suspect]
     Active Substance: TEMOZOLOMIDE
     Indication: Prolactin-producing pituitary tumour

REACTIONS (4)
  - Prolactin-producing pituitary tumour [Recovering/Resolving]
  - Condition aggravated [Recovering/Resolving]
  - Optic neuropathy [Unknown]
  - Drug ineffective for unapproved indication [Unknown]
